FAERS Safety Report 25879939 (Version 1)
Quarter: 2025Q4

REPORT INFORMATION
  Report Type: Spontaneous
  Country: US (occurrence: US)
  Receive Date: 20251004
  Receipt Date: 20251004
  Transmission Date: 20260118
  Serious: No
  Sender: GILEAD
  Company Number: US-GILEAD-2025-0730734

PATIENT
  Sex: Male

DRUGS (3)
  1. LENACAPAVIR [Suspect]
     Active Substance: LENACAPAVIR
     Indication: Product used for unknown indication
     Dosage: UNK, INJECTION
     Route: 065
  2. LENACAPAVIR [Suspect]
     Active Substance: LENACAPAVIR
     Dosage: UNK, INJECTION
     Route: 065
     Dates: start: 20250929, end: 20250929
  3. LENACAPAVIR [Suspect]
     Active Substance: LENACAPAVIR
     Dosage: UNK, INJECTION
     Route: 065
     Dates: start: 20250930, end: 20250930

REACTIONS (2)
  - Injection site nodule [Unknown]
  - Injection site reaction [Unknown]

NARRATIVE: CASE EVENT DATE: 20250929
